FAERS Safety Report 7461011-5 (Version None)
Quarter: 2011Q2

REPORT INFORMATION
  Report Type: 
  Country: None (occurrence: None)
  Receive Date: 20110505
  Receipt Date: 20110429
  Transmission Date: 20111010
  Serious: Yes (Other)
  Sender: FDA-Public Use
  Company Number: BR-GILEAD-2011-0036997

PATIENT
  Sex: Male
  Weight: 60.6 kg

DRUGS (11)
  1. LAMIVUDINE [Suspect]
     Indication: HIV INFECTION
     Dates: start: 20110210
  2. ETHAMBUTOL HYDROCHLORIDE [Concomitant]
     Indication: TUBERCULOSIS
     Dates: start: 20101216
  3. RIFAMPICIN [Concomitant]
     Indication: TUBERCULOSIS
     Dates: start: 20101216
  4. POTASSIUM DICLOFENAC [Concomitant]
     Indication: SINUSITIS
     Dates: start: 20110217
  5. ISONIAZID [Concomitant]
     Indication: TUBERCULOSIS
     Dates: start: 20101216
  6. PYRAZINAMIDE [Concomitant]
     Indication: TUBERCULOSIS
     Dates: start: 20101216
  7. AZITHROMYCIN [Concomitant]
     Indication: SINUSITIS
     Dates: start: 20110217
  8. VIREAD [Suspect]
     Indication: HIV INFECTION
     Dates: start: 20110210
  9. RALTEGRAVIR [Suspect]
     Indication: HIV INFECTION
     Dates: start: 20110210
  10. DEXCHLORPHENIRAMINE MALEATE [Concomitant]
     Indication: SINUSITIS
     Dates: start: 20110217
  11. VITAMIN B6 [Concomitant]

REACTIONS (2)
  - IMMUNE RECONSTITUTION SYNDROME [None]
  - SEPSIS [None]
